FAERS Safety Report 9675030 (Version 2)
Quarter: 2013Q4

REPORT INFORMATION
  Report Type: Spontaneous
  Country: DE (occurrence: JP)
  Receive Date: 20131107
  Receipt Date: 20131120
  Transmission Date: 20140711
  Serious: Yes (Other)
  Sender: FDA-Public Use
  Company Number: JP-FRI-1000050800

PATIENT
  Age: 74 Year
  Sex: Male

DRUGS (9)
  1. MEMANTINE [Suspect]
     Indication: DEMENTIA ALZHEIMER^S TYPE
     Dosage: 5 MG
     Route: 048
     Dates: start: 20131009, end: 20131010
  2. DONEPEZIL [Concomitant]
     Indication: DEMENTIA ALZHEIMER^S TYPE
     Dosage: 5 MG
     Route: 048
     Dates: start: 20121114
  3. NORVASC [Concomitant]
     Indication: MYOCARDIAL INFARCTION
     Dosage: 10 MG
     Route: 048
     Dates: start: 20001109
  4. RENIVACE [Concomitant]
     Indication: MYOCARDIAL INFARCTION
     Dosage: 2.5 MG
     Route: 048
     Dates: start: 20001109
  5. WARFARIN [Concomitant]
     Indication: ATRIAL FIBRILLATION
     Dosage: 2 MG
     Route: 048
     Dates: start: 20001109
  6. PANALDINE [Concomitant]
     Indication: ATRIAL FIBRILLATION
     Dosage: 100 MG
     Route: 048
     Dates: start: 20001109
  7. CRESTOR [Concomitant]
     Indication: DYSLIPIDAEMIA
     Dosage: 2.5 MG
     Route: 048
     Dates: start: 20110706
  8. BEPRICOR [Concomitant]
     Indication: ATRIAL FIBRILLATION
     Dosage: 100 MG
     Route: 048
  9. KAMA [Concomitant]
     Dosage: 0.5 GRAM
     Route: 048
     Dates: start: 20001109

REACTIONS (6)
  - Rash [Recovering/Resolving]
  - Blepharitis [Recovering/Resolving]
  - Eyelid oedema [Recovering/Resolving]
  - Conjunctival oedema [Recovering/Resolving]
  - Stomatitis [Recovering/Resolving]
  - Oedema mouth [Recovering/Resolving]
